FAERS Safety Report 12518142 (Version 2)
Quarter: 2019Q2

REPORT INFORMATION
  Report Type: Spontaneous
  Country: JP (occurrence: JP)
  Receive Date: 20160630
  Receipt Date: 20190626
  Transmission Date: 20190711
  Serious: Yes (Hospitalization, Other)
  Sender: FDA-Public Use
  Company Number: JP-BRISTOL-MYERS SQUIBB COMPANY-BMS-2016-051726

PATIENT
  Age: 35 Year
  Sex: Male
  Weight: 76 kg

DRUGS (2)
  1. METGLUCO [Suspect]
     Active Substance: METFORMIN HYDROCHLORIDE
     Indication: TYPE 2 DIABETES MELLITUS
     Dosage: 750 MG, UNK
     Route: 048
     Dates: start: 201503
  2. JARDIANCE [Suspect]
     Active Substance: EMPAGLIFLOZIN
     Indication: TYPE 2 DIABETES MELLITUS
     Dosage: UNK
     Route: 048
     Dates: start: 201503

REACTIONS (12)
  - Blood urea increased [Recovered/Resolved]
  - Blood urea nitrogen/creatinine ratio increased [Recovered/Resolved]
  - Diabetic ketoacidosis [Recovered/Resolved]
  - Hypophagia [Recovering/Resolving]
  - Blood ketone body increased [Unknown]
  - Blood creatinine increased [Recovered/Resolved]
  - Prerenal failure [Unknown]
  - Metabolic acidosis [Unknown]
  - Vomiting [Unknown]
  - Dehydration [Unknown]
  - Nausea [Not Recovered/Not Resolved]
  - Dry mouth [Unknown]

NARRATIVE: CASE EVENT DATE: 2015
